FAERS Safety Report 7665072-X (Version None)
Quarter: 2011Q3

REPORT INFORMATION
  Report Type: 
  Country: None (occurrence: None)
  Receive Date: 20110806
  Receipt Date: 20110215
  Transmission Date: 20111222
  Serious: No
  Sender: FDA-Public Use
  Company Number: US-ABBOTT-11P-163-0705412-00

PATIENT
  Sex: Female

DRUGS (2)
  1. LIPITOR [Concomitant]
     Indication: PRODUCT USED FOR UNKNOWN INDICATION
  2. NIASPAN [Suspect]
     Indication: HIGH DENSITY LIPOPROTEIN DECREASED
     Dosage: DAILY

REACTIONS (7)
  - BLOOD GLUCOSE INCREASED [None]
  - COUGH [None]
  - PRURITUS [None]
  - PAIN IN EXTREMITY [None]
  - FLUSHING [None]
  - BURNING SENSATION [None]
  - GENERALISED ERYTHEMA [None]
